FAERS Safety Report 8291998-2 (Version None)
Quarter: 2012Q2

REPORT INFORMATION
  Report Type: 
  Country: None (occurrence: None)
  Receive Date: 20120417
  Receipt Date: 20120207
  Transmission Date: 20120825
  Serious: Yes (Other)
  Sender: FDA-Public Use
  Company Number: US-ROCHE-1039571

PATIENT
  Sex: Female

DRUGS (1)
  1. BONIVA [Suspect]
     Indication: PRODUCT USED FOR UNKNOWN INDICATION
     Route: 048

REACTIONS (9)
  - TOOTH DISORDER [None]
  - TOOTH LOSS [None]
  - OSTEOMYELITIS [None]
  - BONE LOSS [None]
  - PAIN [None]
  - OSTEONECROSIS OF JAW [None]
  - SWELLING FACE [None]
  - PRODUCT LABEL ISSUE [None]
  - FUNGAL INFECTION [None]
